FAERS Safety Report 16328363 (Version 1)
Quarter: 2019Q2

REPORT INFORMATION
  Report Type: Spontaneous
  Country: FR (occurrence: FR)
  Receive Date: 20190518
  Receipt Date: 20190518
  Transmission Date: 20190711
  Serious: Yes (Other)
  Sender: FDA-Public Use
  Company Number: FR-ACCORD-128054

PATIENT
  Age: 63 Year
  Sex: Female
  Weight: 72 kg

DRUGS (14)
  1. LEXOMIL [Concomitant]
     Active Substance: BROMAZEPAM
     Dosage: 12 MG TABLET
     Route: 048
  2. DOLIPRANE [Concomitant]
     Active Substance: ACETAMINOPHEN
     Route: 048
  3. OROCAL VITAMIN D3 [Concomitant]
     Active Substance: CALCIUM CARBONATE\CHOLECALCIFEROL
     Dosage: 500 MG / 200 U.I., SUCKING TABLET
     Route: 048
  4. OTEZLA [Concomitant]
     Active Substance: APREMILAST
     Dosage: NR
     Route: 058
     Dates: start: 201811, end: 20190114
  5. SPASFON [Concomitant]
     Route: 048
  6. PRAVASTATIN. [Concomitant]
     Active Substance: PRAVASTATIN
     Route: 048
  7. STELARA [Suspect]
     Active Substance: USTEKINUMAB
     Indication: PSORIASIS
     Dosage: NR
     Route: 058
  8. ACUPAN [Concomitant]
     Active Substance: NEFOPAM HYDROCHLORIDE
     Route: 048
  9. METHOTREXATE. [Suspect]
     Active Substance: METHOTREXATE
     Indication: PSORIASIS
     Dosage: ALSO RECEIVED 10 MG FROM NOV-2014 TO FEB-2015.
     Route: 048
     Dates: start: 2013, end: 201404
  10. COSENTYX [Suspect]
     Active Substance: SECUKINUMAB
     Indication: PSORIASIS
     Route: 058
     Dates: start: 20180213, end: 201805
  11. SPECIAFOLDINE [Concomitant]
     Active Substance: FOLIC ACID
     Route: 048
  12. MOXYDAR [Concomitant]
     Active Substance: ALUMINUM HYDROXIDE\ALUMINUM PHOSPHATE\GUAR GUM\MAGNESIUM HYDROXIDE
     Route: 048
  13. WYSTAMM [Concomitant]
     Active Substance: RUPATADINE FUMARATE
     Dosage: 10 MG TABLET
     Route: 048
  14. ENBREL [Suspect]
     Active Substance: ETANERCEPT
     Indication: PSORIASIS
     Route: 058
     Dates: start: 201404, end: 201502

REACTIONS (1)
  - Cutaneous T-cell lymphoma [Not Recovered/Not Resolved]

NARRATIVE: CASE EVENT DATE: 20180718
